FAERS Safety Report 8163790-0 (Version None)
Quarter: 2012Q1

REPORT INFORMATION
  Report Type: 
  Country: None (occurrence: None)
  Receive Date: 20120224
  Receipt Date: 20120220
  Transmission Date: 20120608
  Serious: Yes (Other)
  Sender: FDA-Public Use
  Company Number: PHEH2011US012737

PATIENT
  Sex: Male

DRUGS (1)
  1. GILENYA [Suspect]
     Indication: MULTIPLE SCLEROSIS
     Dosage: 0.5 MG, DAILY
     Route: 048
     Dates: start: 20110201

REACTIONS (4)
  - POST-TRAUMATIC NECK SYNDROME [None]
  - ROAD TRAFFIC ACCIDENT [None]
  - BACK DISORDER [None]
  - HEADACHE [None]
